FAERS Safety Report 6026103-6 (Version None)
Quarter: 2009Q1

REPORT INFORMATION
  Report Type: 
  Country: None (occurrence: None)
  Receive Date: 20090102
  Receipt Date: 20081229
  Transmission Date: 20090719
  Serious: Yes (Other)
  Sender: FDA-Public Use
  Company Number: US-BAYER-200840921NA

PATIENT
  Age: 62 Year
  Sex: Female

DRUGS (7)
  1. AVELOX [Suspect]
     Indication: SINUSITIS
     Route: 065
     Dates: start: 20070101
  2. OVER THE COUNTER ANTACID [Concomitant]
  3. THYROID TAB [Concomitant]
  4. POTASSIUM CHLORIDE [Concomitant]
  5. AVALIDE [Concomitant]
  6. VASOTEC [Concomitant]
  7. TENORMIN [Concomitant]

REACTIONS (1)
  - LOSS OF CONSCIOUSNESS [None]
